FAERS Safety Report 11826234 (Version 1)
Quarter: 2015Q4

REPORT INFORMATION
  Report Type: Spontaneous
  Country: JP (occurrence: JP)
  Receive Date: 20151211
  Receipt Date: 20151211
  Transmission Date: 20160305
  Serious: Yes (Hospitalization)
  Sender: FDA-Public Use
  Company Number: JP-MYLANLABS-2015M1044332

PATIENT
  Age: 91 Year
  Sex: Female
  Weight: 34 kg

DRUGS (2)
  1. FAMCICLOVIR. [Suspect]
     Active Substance: FAMCICLOVIR
     Indication: HERPES ZOSTER
     Route: 065
  2. CEFOTIAM [Concomitant]
     Active Substance: CEFOTIAM
     Indication: URINARY TRACT INFECTION
     Dosage: 2 G/DAY
     Route: 065

REACTIONS (2)
  - Overdose [Recovered/Resolved]
  - Acute kidney injury [Recovered/Resolved]
